FAERS Safety Report 5121521-2 (Version None)
Quarter: 2006Q4

REPORT INFORMATION
  Report Type: 
  Country: None (occurrence: None)
  Receive Date: 20061006
  Receipt Date: 20060925
  Transmission Date: 20070319
  Serious: Yes (Hospitalization)
  Sender: FDA-Public Use
  Company Number: FR-BRISTOL-MYERS SQUIBB COMPANY-13522842

PATIENT
  Age: 91 Year
  Sex: Female

DRUGS (11)
  1. APROVEL TABS 150 MG [Suspect]
     Route: 048
     Dates: end: 20051214
  2. ASPIRIN [Suspect]
     Dates: end: 20051214
  3. LASIX [Suspect]
     Dates: end: 20051214
  4. ALDACTONE [Suspect]
     Dates: end: 20051214
  5. VASTEN TABS 20 MG [Concomitant]
  6. NITRODERM [Concomitant]
  7. ENDECON [Concomitant]
  8. ENDOTELON [Concomitant]
  9. XANAX [Concomitant]
  10. INSULATARD NPH HUMAN [Concomitant]
  11. KAYEXALATE [Concomitant]
     Dosage: 2 MEASURES-SPOONS THREE TIMES PER DAY

REACTIONS (4)
  - DUODENAL ULCER [None]
  - HYPONATRAEMIA [None]
  - MICROCYTIC ANAEMIA [None]
  - RENAL FAILURE ACUTE [None]
